FAERS Safety Report 7474801-X (Version None)
Quarter: 2011Q2

REPORT INFORMATION
  Report Type: 
  Country: None (occurrence: None)
  Receive Date: 20110512
  Receipt Date: 20110331
  Transmission Date: 20111010
  Serious: Yes (Hospitalization, Other)
  Sender: FDA-Public Use
  Company Number: US-BAYER-201041693NA

PATIENT
  Age: 17 Year
  Sex: Female
  Weight: 40 kg

DRUGS (5)
  1. IBUPROFEN [Concomitant]
     Dosage: UNK UNK, PRN
  2. YASMIN [Suspect]
     Indication: PRODUCT USED FOR UNKNOWN INDICATION
     Route: 048
  3. YAZ [Suspect]
     Indication: PRODUCT USED FOR UNKNOWN INDICATION
     Dosage: UNK
     Route: 048
  4. DICYCLOMINE [Concomitant]
  5. LONOX [Concomitant]

REACTIONS (9)
  - BILIARY DYSKINESIA [None]
  - VOMITING [None]
  - DIARRHOEA [None]
  - DECREASED APPETITE [None]
  - EATING DISORDER [None]
  - IRRITABLE BOWEL SYNDROME [None]
  - NAUSEA [None]
  - WEIGHT DECREASED [None]
  - GALLBLADDER DISORDER [None]
